FAERS Safety Report 26081512 (Version 1)
Quarter: 2025Q4

REPORT INFORMATION
  Report Type: Spontaneous
  Country: VE (occurrence: VE)
  Receive Date: 20251124
  Receipt Date: 20251124
  Transmission Date: 20260118
  Serious: Yes (Death, Hospitalization, Other)
  Sender: NOVARTIS
  Company Number: VE-002147023-NVSC2025VE064078

PATIENT
  Sex: Male

DRUGS (1)
  1. GLIVEC [Suspect]
     Active Substance: IMATINIB MESYLATE
     Indication: Chronic myeloid leukaemia
     Dosage: 800 MG (800 MG (8  X 100 MG))
     Route: 065

REACTIONS (4)
  - Death [Fatal]
  - Pyrexia [Unknown]
  - Malaise [Unknown]
  - Haemoglobin decreased [Unknown]
